FAERS Safety Report 13283586 (Version 1)
Quarter: 2017Q1

REPORT INFORMATION
  Report Type: Report from Study
  Country: BR (occurrence: BR)
  Receive Date: 20170301
  Receipt Date: 20170301
  Transmission Date: 20170428
  Serious: Yes (Other)
  Sender: FDA-Public Use
  Company Number: BR-JNJFOC-20170223923

PATIENT
  Age: 17 Year
  Sex: Male

DRUGS (2)
  1. REMICADE [Suspect]
     Active Substance: INFLIXIMAB
     Indication: CROHN^S DISEASE
     Route: 042
     Dates: start: 20170127
  2. CEFALEXIN [Concomitant]
     Active Substance: CEPHALEXIN
     Route: 065

REACTIONS (4)
  - Drug dose omission [Unknown]
  - Off label use [Unknown]
  - Product use issue [Unknown]
  - Abscess [Recovering/Resolving]

NARRATIVE: CASE EVENT DATE: 2017
